FAERS Safety Report 25907186 (Version 2)
Quarter: 2025Q4

REPORT INFORMATION
  Report Type: Spontaneous
  Country: SG (occurrence: SG)
  Receive Date: 20251010
  Receipt Date: 20251014
  Transmission Date: 20260118
  Serious: Yes (Hospitalization)
  Sender: PFIZER
  Company Number: SG-MLMSERVICE-20250929-PI661182-00123-1

PATIENT
  Age: 75 Year
  Sex: Female

DRUGS (5)
  1. DOCETAXEL [Suspect]
     Active Substance: DOCETAXEL
     Indication: Breast cancer stage III
     Dosage: UNK, CYCLIC
     Dates: start: 202405
  2. TRASTUZUMAB [Concomitant]
     Active Substance: TRASTUZUMAB
     Indication: Breast cancer stage III
     Dosage: UNK, CYCLIC
     Dates: start: 202405
  3. FILGRASTIM [Concomitant]
     Active Substance: FILGRASTIM
     Indication: Breast cancer stage III
     Dosage: UNK, CYCLIC
     Dates: start: 202405
  4. PERTUZUMAB [Concomitant]
     Active Substance: PERTUZUMAB
     Indication: Breast cancer stage III
     Dosage: UNK, CYCLIC
     Dates: start: 202405
  5. HALOPERIDOL [Concomitant]
     Active Substance: HALOPERIDOL
     Indication: Schizophrenia
     Dosage: UNK
     Dates: start: 1994

REACTIONS (1)
  - Catatonia [Recovered/Resolved]

NARRATIVE: CASE EVENT DATE: 20240101
